FAERS Safety Report 16269107 (Version 1)
Quarter: 2019Q2

REPORT INFORMATION
  Report Type: Spontaneous
  Country: US (occurrence: US)
  Receive Date: 20190502
  Receipt Date: 20190502
  Transmission Date: 20190711
  Serious: Yes (Hospitalization, Disabling)
  Sender: FDA-Public Use
  Company Number: None

PATIENT
  Age: 49 Year
  Sex: Female
  Weight: 112.5 kg

DRUGS (6)
  1. SURGICAL CHLOROHEXIDINE SCRUB [Suspect]
     Active Substance: CHLORHEXIDINE
     Indication: PREOPERATIVE CARE
     Dates: start: 20160428, end: 20160428
  2. VITAMIN C [Concomitant]
     Active Substance: ASCORBIC ACID
  3. BLOOD PRESSURE MEDCINIE [Concomitant]
     Active Substance: UNSPECIFIED INGREDIENT
  4. GASTRIC REFLUX [Concomitant]
  5. MULTI VIT [Concomitant]
     Active Substance: VITAMINS
  6. SEROQUEL [Concomitant]
     Active Substance: QUETIAPINE FUMARATE

REACTIONS (10)
  - Burning sensation [None]
  - Post procedural oedema [None]
  - Dermatitis contact [None]
  - Post procedural complication [None]
  - Blister [None]
  - Mobility decreased [None]
  - Tendon disorder [None]
  - Dystonia [None]
  - Complex regional pain syndrome [None]
  - Post procedural discomfort [None]

NARRATIVE: CASE EVENT DATE: 20160428
